FAERS Safety Report 9114421 (Version 1)
Quarter: 2013Q1

REPORT INFORMATION
  Report Type: Spontaneous
  Country: GB (occurrence: GB)
  Receive Date: 20130208
  Receipt Date: 20130208
  Transmission Date: 20140127
  Serious: Yes (Hospitalization, Other)
  Sender: FDA-Public Use
  Company Number: GB-ABBOTT-13P-167-1046912-00

PATIENT
  Age: 28 Year
  Sex: Female

DRUGS (5)
  1. HUMIRA [Suspect]
     Indication: RHEUMATOID ARTHRITIS
     Dates: start: 20110419, end: 20121207
  2. SULPHASALAZINE [Concomitant]
     Indication: RHEUMATOID ARTHRITIS
     Dates: start: 20120130
  3. DICLOFENAC [Concomitant]
     Indication: RHEUMATOID ARTHRITIS
     Dates: start: 20121022
  4. ACETAZOLAMIDE [Concomitant]
     Indication: INTRACRANIAL PRESSURE INCREASED
     Dates: start: 20121022
  5. VENLAFAXINE [Concomitant]
     Indication: DEPRESSION

REACTIONS (3)
  - Eye discharge [Recovering/Resolving]
  - Papilloedema [Recovering/Resolving]
  - Intracranial pressure increased [Recovering/Resolving]
